FAERS Safety Report 7875328-3 (Version None)
Quarter: 2011Q4

REPORT INFORMATION
  Report Type: 
  Country: None (occurrence: None)
  Receive Date: 20111031
  Receipt Date: 20110912
  Transmission Date: 20120403
  Serious: Yes (Other)
  Sender: FDA-Public Use
  Company Number: TR-BAYER-2011-073486

PATIENT
  Age: 39 Year
  Sex: Female
  Weight: 69 kg

DRUGS (2)
  1. BETASERON [Suspect]
     Indication: MULTIPLE SCLEROSIS
     Dosage: 0.75 ML, UNK
     Route: 058
     Dates: start: 20110617
  2. FLURBIPROFEN [Concomitant]

REACTIONS (4)
  - HYPERSENSITIVITY [None]
  - UNEVALUABLE EVENT [None]
  - OEDEMA [None]
  - SYNCOPE [None]
